FAERS Safety Report 5327567-3 (Version None)
Quarter: 2007Q2

REPORT INFORMATION
  Report Type: 
  Country: None (occurrence: None)
  Receive Date: 20070517
  Receipt Date: 20070131
  Transmission Date: 20071010
  Serious: Yes (Other)
  Sender: FDA-Public Use
  Company Number: US-JNJFOC-20070103231

PATIENT
  Age: 67 Year
  Sex: Female

DRUGS (10)
  1. TRAMADOL IR [Suspect]
     Indication: INTENTIONAL OVERDOSE
     Route: 048
  2. AMITRIPTYLINE HCL [Suspect]
     Indication: INTENTIONAL OVERDOSE
     Route: 048
  3. LOPRESSOR [Concomitant]
     Route: 065
  4. BETA BLOCKERS [Concomitant]
     Route: 065
  5. LEVOTHYROXINE SODIUM [Concomitant]
     Route: 065
  6. NAPROXEN [Concomitant]
     Route: 065
  7. ISOSORBIDE [Concomitant]
     Route: 065
  8. PREDNISONE TAB [Concomitant]
     Route: 065
  9. SIMVASTATIN [Concomitant]
     Route: 065
  10. OXYCODONE HCL AND ACETAMINOPHEN [Concomitant]
     Indication: PAIN
     Route: 065

REACTIONS (5)
  - BRADYCARDIA [None]
  - HYPOTENSION [None]
  - INTENTIONAL OVERDOSE [None]
  - SOMNOLENCE [None]
  - UNRESPONSIVE TO STIMULI [None]
